FAERS Safety Report 10157619 (Version 2)
Quarter: 2014Q4

REPORT INFORMATION
  Report Type: Spontaneous
  Country: FR (occurrence: FR)
  Receive Date: 20140507
  Receipt Date: 20141203
  Transmission Date: 20150528
  Serious: Yes (Life-Threatening, Hospitalization, Other)
  Sender: FDA-Public Use
  Company Number: FR-PFIZER INC-2014123316

PATIENT
  Age: 43 Year
  Sex: Male

DRUGS (2)
  1. ADVIL [Suspect]
     Active Substance: IBUPROFEN
     Indication: FEBRILE INFECTION
     Dosage: UNK
     Route: 048
     Dates: start: 201402, end: 201402
  2. PARACETAMOL [Suspect]
     Active Substance: ACETAMINOPHEN
     Indication: FEBRILE INFECTION
     Dosage: UNK
     Route: 048
     Dates: start: 201402, end: 201402

REACTIONS (4)
  - Lung disorder [Recovered/Resolved]
  - Pneumonia [Recovered/Resolved]
  - Weight decreased [Recovered/Resolved]
  - Bronchiolitis [Unknown]

NARRATIVE: CASE EVENT DATE: 201402
